FAERS Safety Report 23794261 (Version 1)
Quarter: 2024Q2

REPORT INFORMATION
  Report Type: Spontaneous
  Country: US (occurrence: None)
  Receive Date: 20240426
  Receipt Date: 20240426
  Transmission Date: 20240716
  Serious: Yes (Hospitalization)
  Sender: FDA-Public Use
  Company Number: None

PATIENT
  Age: 72 Year
  Sex: Male
  Weight: 100 kg

DRUGS (1)
  1. IBUPROFEN [Suspect]
     Active Substance: IBUPROFEN
     Indication: Lymphadenopathy

REACTIONS (3)
  - Gastrointestinal haemorrhage [None]
  - Duodenal ulcer [None]
  - Pneumonia [None]

NARRATIVE: CASE EVENT DATE: 20230329
